FAERS Safety Report 5014940-6 (Version None)
Quarter: 2006Q2

REPORT INFORMATION
  Report Type: 
  Country: None (occurrence: None)
  Receive Date: 20060425
  Receipt Date: 20060217
  Transmission Date: 20061013
  Serious: No
  Sender: FDA-Public Use
  Company Number: 222128

PATIENT
  Sex: Male

DRUGS (5)
  1. XOLAIR [Suspect]
     Indication: ASTHMA
     Dosage: 375 MG, Q2W, SUBCUTANEOUS
     Route: 058
     Dates: start: 20040929
  2. SINGULAIR [Concomitant]
  3. PROVENTIL MDI (ALBUTEROL/ALBUTEROL SULFATE) [Concomitant]
  4. ADVAIR DISKUS 100/50 [Concomitant]
  5. ZYRTEC [Concomitant]

REACTIONS (2)
  - ASTHMA [None]
  - DRUG INEFFECTIVE [None]
